FAERS Safety Report 11512952 (Version 1)
Quarter: 2015Q3

REPORT INFORMATION
  Report Type: Spontaneous
  Country: US (occurrence: None)
  Receive Date: 20150915
  Receipt Date: 20150915
  Transmission Date: 20151125
  Serious: Yes (Disabling)
  Sender: FDA-Public Use
  Company Number: None

PATIENT
  Age: 70 Year
  Sex: Female
  Weight: 53.07 kg

DRUGS (7)
  1. AZITHROMYCIN [Concomitant]
     Active Substance: AZITHROMYCIN ANHYDROUS
  2. ALBUTEROL SULFATE. [Concomitant]
     Active Substance: ALBUTEROL SULFATE
  3. PERFOROMIST [Concomitant]
     Active Substance: FORMOTEROL FUMARATE DIHYDRATE
  4. CITRACAL [Concomitant]
     Active Substance: CALCIUM CITRATE
  5. LISINOPRIL. [Concomitant]
     Active Substance: LISINOPRIL
  6. OXTGEN [Concomitant]
  7. AFLIBERCEPT [Suspect]
     Active Substance: AFLIBERCEPT
     Indication: MACULAR DEGENERATION
     Dosage: 1 ML  MONTHLY  INTO THE EYE
     Dates: start: 20150527

REACTIONS (4)
  - Superficial injury of eye [None]
  - Blindness unilateral [None]
  - Corneal degeneration [None]
  - Condition aggravated [None]

NARRATIVE: CASE EVENT DATE: 20150527
